FAERS Safety Report 6420467-7 (Version None)
Quarter: 2009Q4

REPORT INFORMATION
  Report Type: 
  Country: None (occurrence: None)
  Receive Date: 20091021
  Receipt Date: 20090707
  Transmission Date: 20100525
  Serious: No
  Sender: FDA-Public Use
  Company Number: SPV1-2009-01098

PATIENT
  Age: 14 Year
  Sex: Male
  Weight: 136.1 kg

DRUGS (1)
  1. VYVANSE [Suspect]
     Indication: ATTENTION DEFICIT/HYPERACTIVITY DISORDER
     Dosage: 50 MG, 1X/DAY:QD, ORAL
     Route: 048
     Dates: start: 20090506, end: 20090510

REACTIONS (3)
  - EYE PAIN [None]
  - MYDRIASIS [None]
  - OFF LABEL USE [None]
